FAERS Safety Report 14377112 (Version 2)
Quarter: 2018Q1

REPORT INFORMATION
  Report Type: Spontaneous
  Country: US (occurrence: US)
  Receive Date: 20180111
  Receipt Date: 20180112
  Transmission Date: 20180509
  Serious: Yes (Other)
  Sender: FDA-Public Use
  Company Number: US-SA-2018SA005372

PATIENT
  Sex: Female

DRUGS (3)
  1. LEVEMIR [Concomitant]
     Active Substance: INSULIN DETEMIR
     Route: 065
  2. LANTUS [Suspect]
     Active Substance: INSULIN GLARGINE
     Indication: TYPE 1 DIABETES MELLITUS
     Dosage: DOSE:17 UNIT(S)
     Route: 051
     Dates: start: 2015, end: 20171231
  3. HUMALOG [Concomitant]
     Active Substance: INSULIN LISPRO
     Dosage: SLIDING SCALE AS NEEDED, GENERALLY WITH MEALS,
     Route: 065
     Dates: end: 20180103

REACTIONS (5)
  - Muscle spasms [Recovered/Resolved]
  - Insomnia [Unknown]
  - Back pain [Recovered/Resolved]
  - Pain [Unknown]
  - Sciatica [Unknown]
